FAERS Safety Report 15072853 (Version 1)
Quarter: 2018Q2

REPORT INFORMATION
  Report Type: Spontaneous
  Country: GB (occurrence: GB)
  Receive Date: 20180627
  Receipt Date: 20180627
  Transmission Date: 20180711
  Serious: Yes (Life-Threatening)
  Sender: FDA-Public Use
  Company Number: GB-CONCORDIA PHARMACEUTICALS INC.-E2B_00012892

PATIENT
  Age: 87 Year
  Sex: Female
  Weight: 68 kg

DRUGS (7)
  1. PREDNISOLONE. [Suspect]
     Active Substance: PREDNISOLONE
     Indication: PNEUMONIA
     Route: 048
     Dates: start: 20171103, end: 20171108
  2. COTRIMOXAZOLE [Concomitant]
     Active Substance: SULFAMETHOXAZOLE\TRIMETHOPRIM
     Route: 042
  3. ANTIBIOTIC [Concomitant]
     Active Substance: UNSPECIFIED INGREDIENT
  4. MEROPENEM. [Concomitant]
     Active Substance: MEROPENEM
     Route: 042
  5. METHYLPREDNISOLONE. [Suspect]
     Active Substance: METHYLPREDNISOLONE
     Indication: PNEUMONIA
     Route: 042
     Dates: start: 20171031, end: 20171102
  6. TINZAPARIN [Concomitant]
     Active Substance: TINZAPARIN
     Route: 058
  7. PEMBROLIZUMAB. [Concomitant]
     Active Substance: PEMBROLIZUMAB
     Indication: COLON CANCER METASTATIC
     Route: 042
     Dates: start: 20161027, end: 20171020

REACTIONS (1)
  - Gastrointestinal haemorrhage [Unknown]
